FAERS Safety Report 19266675 (Version 2)
Quarter: 2021Q2

REPORT INFORMATION
  Report Type: Spontaneous
  Country: US (occurrence: US)
  Receive Date: 20210518
  Receipt Date: 20210614
  Transmission Date: 20210717
  Serious: No
  Sender: FDA-Public Use
  Company Number: US-LEADINGPHARMA-US-2021LEASPO00158

PATIENT
  Sex: Female

DRUGS (2)
  1. LORAZEPAM TABLETS USP [Suspect]
     Active Substance: LORAZEPAM
     Indication: PRODUCT USED FOR UNKNOWN INDICATION
     Route: 048
     Dates: start: 202105
  2. LORAZEPAM TABLETS USP [Suspect]
     Active Substance: LORAZEPAM

REACTIONS (8)
  - Product physical issue [None]
  - Muscle tightness [Not Recovered/Not Resolved]
  - Dry mouth [Not Recovered/Not Resolved]
  - Myoclonus [Not Recovered/Not Resolved]
  - Headache [Not Recovered/Not Resolved]
  - Anxiety [Not Recovered/Not Resolved]
  - Restlessness [Not Recovered/Not Resolved]
  - Agitation [Not Recovered/Not Resolved]

NARRATIVE: CASE EVENT DATE: 202105
